FAERS Safety Report 6389492-9 (Version None)
Quarter: 2009Q4

REPORT INFORMATION
  Report Type: 
  Country: None (occurrence: None)
  Receive Date: 20091006
  Receipt Date: 20090928
  Transmission Date: 20100525
  Serious: Yes (Other)
  Sender: FDA-Public Use
  Company Number: US-ROCHE-659073

PATIENT
  Sex: Female

DRUGS (4)
  1. CAPECITABINE [Suspect]
     Indication: BREAST CANCER
     Dosage: CO-INDICATION: CHRONIC HEPATITIS C VIRUS INFECTION
     Route: 065
  2. DOXORUBICIN HCL [Suspect]
     Indication: BREAST CANCER
     Dosage: CO-INDICATION: CHRONIC HEPATITIS C VIRUS INFECTION
     Route: 065
  3. CYCLOPHOSPHAMIDE [Suspect]
     Indication: BREAST CANCER
     Dosage: CO-INDICATION: CHRONIC HEPATITIS C VIRUS INFECTION
     Route: 065
  4. GEMCITABINE [Suspect]
     Indication: BREAST CANCER
     Dosage: CO-INDICATION: CHRONIC HEPATITIS C VIRUS INFECTION
     Route: 065

REACTIONS (3)
  - ASCITES [None]
  - JAUNDICE [None]
  - LIVER FUNCTION TEST ABNORMAL [None]
